FAERS Safety Report 26000501 (Version 1)
Quarter: 2025Q4

REPORT INFORMATION
  Report Type: Spontaneous
  Country: US (occurrence: None)
  Receive Date: 20251104
  Receipt Date: 20251104
  Transmission Date: 20260117
  Serious: No
  Sender: FDA-CTU
  Company Number: None

PATIENT
  Age: 31 Year
  Sex: Female
  Weight: 63 kg

DRUGS (4)
  1. LISDEXAMFETAMINE [Suspect]
     Active Substance: LISDEXAMFETAMINE
     Indication: Attention deficit hyperactivity disorder
  2. Altavera birth control [Concomitant]
  3. Liquid IV [Concomitant]
  4. chewable ashwaganda [Concomitant]

REACTIONS (3)
  - Headache [None]
  - Depression [None]
  - Suicidal ideation [None]
